FAERS Safety Report 8567523-5 (Version None)
Quarter: 2012Q3

REPORT INFORMATION
  Report Type: 
  Country: None (occurrence: None)
  Receive Date: 20120803
  Receipt Date: 20120723
  Transmission Date: 20120928
  Serious: Yes (Other)
  Sender: FDA-Public Use
  Company Number: DE-ACTELION-A-CH2012-69145

PATIENT
  Age: 85 Year
  Sex: Male

DRUGS (8)
  1. RAMIPRIL [Concomitant]
  2. TRACLEER [Suspect]
     Indication: PULMONARY ARTERIAL HYPERTENSION
     Dosage: UNK , UNK
     Route: 048
  3. PREDNISOLONE [Concomitant]
  4. ALDACTONE [Concomitant]
  5. PRAVASTATIN [Concomitant]
  6. BISOPROLOL FUMARATE [Concomitant]
  7. NITRENDIPIN [Concomitant]
  8. TORSEMIDE [Concomitant]

REACTIONS (3)
  - SYNCOPE [None]
  - SPEECH DISORDER [None]
  - CONVULSION [None]
